FAERS Safety Report 9369129 (Version 2)
Quarter: 2013Q2

REPORT INFORMATION
  Report Type: Spontaneous
  Country: BR (occurrence: BR)
  Receive Date: 20130626
  Receipt Date: 20130628
  Transmission Date: 20140414
  Serious: Yes (Other)
  Sender: FDA-Public Use
  Company Number: PHHY2013BR065228

PATIENT
  Age: 15 Year
  Sex: Female
  Weight: 58 kg

DRUGS (4)
  1. RITALIN LA [Suspect]
     Indication: ATTENTION DEFICIT/HYPERACTIVITY DISORDER
     Dosage: ONE CAPSULE DAILY
     Route: 048
     Dates: end: 20130622
  2. RITALINA [Suspect]
     Indication: ATTENTION DEFICIT/HYPERACTIVITY DISORDER
     Dosage: ONE TABLET DAILY
     Route: 048
     Dates: start: 2004
  3. RIVOTRIL [Concomitant]
     Indication: ANXIETY
     Dosage: ONE TABLET DAIKY AS NEEDED
     Dates: start: 2013
  4. HOMEOPATICS NOS [Concomitant]
     Dosage: UNK UKN, UNK

REACTIONS (30)
  - Haematuria [Not Recovered/Not Resolved]
  - Rhinitis [Unknown]
  - Atrial septal defect [Not Recovered/Not Resolved]
  - Syncope [Recovered/Resolved]
  - Fatigue [Not Recovered/Not Resolved]
  - Hypotension [Not Recovered/Not Resolved]
  - Presyncope [Not Recovered/Not Resolved]
  - Blood pressure decreased [Recovered/Resolved]
  - Dyspnoea [Not Recovered/Not Resolved]
  - Sinusitis [Recovered/Resolved]
  - Reflux gastritis [Recovered/Resolved]
  - Gastritis [Recovered/Resolved]
  - Abdominal pain [Not Recovered/Not Resolved]
  - Dysphagia [Not Recovered/Not Resolved]
  - Depression [Recovered/Resolved]
  - Vision blurred [Not Recovered/Not Resolved]
  - Weight decreased [Not Recovered/Not Resolved]
  - Dizziness [Not Recovered/Not Resolved]
  - Decreased appetite [Not Recovered/Not Resolved]
  - Anaemia [Recovered/Resolved]
  - Mood altered [Not Recovered/Not Resolved]
  - Constipation [Not Recovered/Not Resolved]
  - Crying [Recovered/Resolved]
  - Malaise [Unknown]
  - Hypersomnia [Recovered/Resolved]
  - Dry mouth [Not Recovered/Not Resolved]
  - Anxiety [Not Recovered/Not Resolved]
  - Headache [Not Recovered/Not Resolved]
  - Nausea [Not Recovered/Not Resolved]
  - Insomnia [Not Recovered/Not Resolved]
